FAERS Safety Report 24085588 (Version 2)
Quarter: 2024Q3

REPORT INFORMATION
  Report Type: Report from Study
  Country: CA (occurrence: CA)
  Receive Date: 20240712
  Receipt Date: 20240809
  Transmission Date: 20241016
  Serious: No
  Sender: MYLAN
  Company Number: CA-MYLANLABS-2024M1062459

PATIENT

DRUGS (1)
  1. EPIPEN [Suspect]
     Active Substance: EPINEPHRINE
     Indication: Product used for unknown indication
     Dosage: UNK
     Route: 065

REACTIONS (2)
  - Product label issue [None]
  - Product quality issue [None]
